FAERS Safety Report 7418588-5 (Version None)
Quarter: 2011Q2

REPORT INFORMATION
  Report Type: 
  Country: None (occurrence: None)
  Receive Date: 20110415
  Receipt Date: 20110408
  Transmission Date: 20111010
  Serious: Yes (Hospitalization, Other)
  Sender: FDA-Public Use
  Company Number: FR-BRISTOL-MYERS SQUIBB COMPANY-15667868

PATIENT
  Age: 48 Year
  Sex: Male

DRUGS (4)
  1. CELIPROLOL [Suspect]
     Indication: HYPERTENSION
     Route: 048
     Dates: start: 20050101
  2. ACETAMINOPHEN [Suspect]
     Dosage: 1DF=1-3TABS
     Route: 048
     Dates: start: 20080101, end: 20080207
  3. METFORMIN HCL [Suspect]
     Indication: DIABETES MELLITUS
     Route: 048
     Dates: start: 20040101
  4. RHINUREFLEX [Suspect]
     Indication: RHINITIS
     Dates: start: 20080129, end: 20080207

REACTIONS (5)
  - NAUSEA [None]
  - ABDOMINAL PAIN [None]
  - JAUNDICE [None]
  - THROMBOCYTOPENIC PURPURA [None]
  - BRONCHITIS [None]
